FAERS Safety Report 6186134-2 (Version None)
Quarter: 2009Q2

REPORT INFORMATION
  Report Type: 
  Country: None (occurrence: None)
  Receive Date: 20090507
  Receipt Date: 20090507
  Transmission Date: 20091009
  Serious: Yes (Other)
  Sender: FDA-Public Use
  Company Number: None

PATIENT
  Age: 23 Year
  Sex: Male
  Weight: 90.7194 kg

DRUGS (1)
  1. SERTRALINE [Suspect]
     Indication: STRESS
     Dosage: ONE TABLET A DAY PO
     Route: 048
     Dates: start: 20090326, end: 20090507

REACTIONS (11)
  - ALCOHOL USE [None]
  - ALCOHOLISM [None]
  - ANGER [None]
  - ANXIETY [None]
  - EMOTIONAL DISTRESS [None]
  - FATIGUE [None]
  - FEAR [None]
  - FEELING ABNORMAL [None]
  - HALLUCINATIONS, MIXED [None]
  - INSOMNIA [None]
  - RESTLESSNESS [None]
